FAERS Safety Report 25445811 (Version 1)
Quarter: 2025Q2

REPORT INFORMATION
  Report Type: Spontaneous
  Country: IR (occurrence: IR)
  Receive Date: 20250617
  Receipt Date: 20250617
  Transmission Date: 20250717
  Serious: Yes (Hospitalization)
  Sender: Alora Pharma
  Company Number: IR-OSMOTICA PHARMACEUTICALS-2025ALO02276

PATIENT
  Age: 16 Year
  Sex: Male
  Weight: 120 kg

DRUGS (7)
  1. CARBAMAZEPINE [Suspect]
     Active Substance: CARBAMAZEPINE
     Indication: Bipolar disorder
     Dosage: 200 MG, 2X/DAY
     Dates: start: 202310, end: 202409
  2. DEXAMETHASONE [Suspect]
     Active Substance: DEXAMETHASONE
     Indication: Dexamethasone suppression test
     Dates: start: 2024
  3. DEXAMETHASONE [Suspect]
     Active Substance: DEXAMETHASONE
     Dates: start: 2024
  4. DEXAMETHASONE [Suspect]
     Active Substance: DEXAMETHASONE
     Dates: start: 2024
  5. TOPIRAMATE [Concomitant]
     Active Substance: TOPIRAMATE
     Indication: Bipolar disorder
     Dosage: 200 MG, 1X/DAY (IN 2 DOSES)
     Dates: start: 202310
  6. BIPERIDEN [Concomitant]
     Active Substance: BIPERIDEN
     Indication: Bipolar disorder
     Dosage: 2 MG, 2X/DAY
  7. VALPROATE [Concomitant]
     Active Substance: VALPROIC ACID
     Indication: Epilepsy
     Dates: end: 202409

REACTIONS (2)
  - False positive investigation result [Recovered/Resolved]
  - Drug interaction [Recovered/Resolved]

NARRATIVE: CASE EVENT DATE: 20240101
